FAERS Safety Report 13589982 (Version 2)
Quarter: 2017Q4

REPORT INFORMATION
  Report Type: Report from Study
  Country: BR (occurrence: BR)
  Receive Date: 20170530
  Receipt Date: 20171222
  Transmission Date: 20180320
  Serious: Yes (Life-Threatening)
  Sender: FDA-Public Use
  Company Number: PHHY2017BR079242

PATIENT
  Sex: Female
  Weight: 54 kg

DRUGS (3)
  1. ACLASTA [Suspect]
     Active Substance: ZOLEDRONIC ACID
     Dosage: UNK
     Route: 042
     Dates: start: 2017
  2. VITAMIN D [Concomitant]
     Active Substance: CHOLECALCIFEROL
     Indication: PRODUCT USED FOR UNKNOWN INDICATION
     Route: 065
  3. ACLASTA [Suspect]
     Active Substance: ZOLEDRONIC ACID
     Indication: OSTEOPENIA
     Dosage: UNK
     Route: 042
     Dates: start: 2014

REACTIONS (17)
  - Pain [Recovering/Resolving]
  - Malaise [Recovering/Resolving]
  - Hypokinesia [Unknown]
  - Asthenia [Recovering/Resolving]
  - Feeling abnormal [Unknown]
  - Influenza [Recovering/Resolving]
  - Stress [Recovering/Resolving]
  - Renal disorder [Unknown]
  - Sciatica [Unknown]
  - Pain in extremity [Recovering/Resolving]
  - Dysstasia [Unknown]
  - Arthralgia [Unknown]
  - Pain [Recovered/Resolved]
  - Headache [Recovered/Resolved]
  - Somnolence [Unknown]
  - Swelling [Unknown]
  - Syncope [Recovering/Resolving]
